FAERS Safety Report 4618616-6 (Version None)
Quarter: 2005Q1

REPORT INFORMATION
  Report Type: 
  Country: None (occurrence: None)
  Receive Date: 20050324
  Receipt Date: 20050308
  Transmission Date: 20050727
  Serious: Yes (Other)
  Sender: FDA-Public Use
  Company Number: USA050290334

PATIENT
  Age: 21 Year
  Sex: Male

DRUGS (2)
  1. ZYPREXA [Suspect]
     Dosage: 20 MG
  2. ZYPREXA [Suspect]
     Dosage: 20 MG

REACTIONS (2)
  - HAEMATEMESIS [None]
  - VOMITING [None]
